FAERS Safety Report 7771705-X (Version None)
Quarter: 2011Q3

REPORT INFORMATION
  Report Type: 
  Country: None (occurrence: None)
  Receive Date: 20110922
  Receipt Date: 20110316
  Transmission Date: 20111222
  Serious: No
  Sender: FDA-Public Use
  Company Number: US-ASTRAZENECA-2011SE14983

PATIENT
  Age: 15 Year
  Sex: Female

DRUGS (2)
  1. SEROQUEL [Suspect]
     Route: 048
     Dates: start: 20070101
  2. LITHIUM [Concomitant]
     Route: 065

REACTIONS (6)
  - NAUSEA [None]
  - FLUSHING [None]
  - FEELING HOT [None]
  - DIZZINESS [None]
  - PARAESTHESIA [None]
  - VISION BLURRED [None]
